FAERS Safety Report 6910118-7 (Version None)
Quarter: 2010Q3

REPORT INFORMATION
  Report Type: 
  Country: None (occurrence: None)
  Receive Date: 20100806
  Receipt Date: 20100730
  Transmission Date: 20110219
  Serious: Yes (Other)
  Sender: FDA-Public Use
  Company Number: GB-TEVA-243587ISR

PATIENT
  Sex: Female

DRUGS (3)
  1. LANSOPRAZOLE [Suspect]
  2. ATORVASTATIN [Interacting]
  3. MIDAZOLAM HYDROCHLORIDE [Interacting]

REACTIONS (2)
  - ANAPHYLACTIC REACTION [None]
  - DRUG INTERACTION [None]
